FAERS Safety Report 20021719 (Version 2)
Quarter: 2022Q1

REPORT INFORMATION
  Report Type: Spontaneous
  Country: US (occurrence: US)
  Receive Date: 20211101
  Receipt Date: 20220207
  Transmission Date: 20220424
  Serious: Yes (Other)
  Sender: FDA-Public Use
  Company Number: US-HORIZON THERAPEUTICS-HZN-2021-008132

PATIENT
  Sex: Male

DRUGS (1)
  1. TEPEZZA [Suspect]
     Active Substance: TEPROTUMUMAB-TRBW
     Indication: Product used for unknown indication
     Dosage: UNK
     Route: 065

REACTIONS (7)
  - Deafness [Unknown]
  - Illness [Unknown]
  - Drug ineffective [Unknown]
  - Alopecia [Unknown]
  - Nausea [Unknown]
  - Dry skin [Unknown]
  - Fatigue [Unknown]
